FAERS Safety Report 4666002-5 (Version None)
Quarter: 2005Q2

REPORT INFORMATION
  Report Type: 
  Country: None (occurrence: None)
  Receive Date: 20050519
  Receipt Date: 20050429
  Transmission Date: 20051028
  Serious: No
  Sender: FDA-Public Use
  Company Number: US-GLAXOSMITHKLINE-A0556326A

PATIENT
  Age: 73 Year
  Sex: Male

DRUGS (8)
  1. AVODART [Suspect]
     Indication: GALLBLADDER DISORDER
     Dosage: .5MG PER DAY
     Route: 048
     Dates: start: 20050101
  2. PREVACID [Concomitant]
  3. ZETIA [Concomitant]
  4. UNKNOWN MEDICATION [Concomitant]
  5. GARLIC [Concomitant]
  6. ASPIRIN [Concomitant]
  7. ATENOLOL [Concomitant]
  8. ALEVE [Concomitant]

REACTIONS (2)
  - DRUG INEFFECTIVE [None]
  - POLLAKIURIA [None]
